FAERS Safety Report 6635035-1 (Version None)
Quarter: 2010Q1

REPORT INFORMATION
  Report Type: 
  Country: None (occurrence: None)
  Receive Date: 20100315
  Receipt Date: 20100301
  Transmission Date: 20100710
  Serious: Yes (Other)
  Sender: FDA-Public Use
  Company Number: TN-MYLANLABS-2010S1003295

PATIENT
  Age: 56 Year
  Sex: Male

DRUGS (3)
  1. IRBESARTAN AND HYDROCHLOROTHIAZIDE [Suspect]
     Indication: HYPERTENSION
     Route: 065
  2. FUROSEMIDE [Suspect]
     Indication: HYPERTENSION
     Route: 065
  3. METHOTREXATE [Concomitant]
     Indication: MIXED CONNECTIVE TISSUE DISEASE
     Route: 065

REACTIONS (1)
  - LICHENOID KERATOSIS [None]
